FAERS Safety Report 17894211 (Version 5)
Quarter: 2022Q3

REPORT INFORMATION
  Report Type: Report from Study
  Country: JP (occurrence: JP)
  Receive Date: 20200615
  Receipt Date: 20220714
  Transmission Date: 20221027
  Serious: Yes (Death, Other)
  Sender: FDA-Public Use
  Company Number: JP-GSKJP-JP2020JPN099115AA

PATIENT

DRUGS (15)
  1. BELIMUMAB [Suspect]
     Active Substance: BELIMUMAB
     Indication: Systemic lupus erythematosus
     Dosage: 200 MG, WE
     Route: 058
     Dates: start: 20181219, end: 20190727
  2. INSULIN NOS [Suspect]
     Active Substance: INSULIN NOS
     Dosage: UNK
  3. PREDONINE [Concomitant]
     Active Substance: PREDNISOLONE
     Indication: Systemic lupus erythematosus
     Dosage: 10 MG, 1D
     Route: 048
     Dates: start: 20181219, end: 20190727
  4. RABEPRAZOLE SODIUM [Concomitant]
     Active Substance: RABEPRAZOLE SODIUM
     Indication: Prophylaxis
  5. ONEALFA [Concomitant]
     Active Substance: ALFACALCIDOL
     Indication: Prophylaxis
  6. DIOVAN [Concomitant]
     Active Substance: VALSARTAN
     Indication: Hypertension
  7. MIZORIBINE [Concomitant]
     Active Substance: MIZORIBINE
     Indication: Systemic lupus erythematosus
  8. PLAQUENIL [Concomitant]
     Active Substance: HYDROXYCHLOROQUINE SULFATE
     Indication: Systemic lupus erythematosus
  9. FUROSEMIDE [Concomitant]
     Active Substance: FUROSEMIDE
     Indication: Systemic lupus erythematosus
  10. CINAL [Concomitant]
     Indication: Systemic lupus erythematosus
  11. JUVELA [Concomitant]
     Active Substance: .ALPHA.-TOCOPHEROL\RETINOL
     Indication: Systemic lupus erythematosus
  12. DIPYRIDAMOLE [Concomitant]
     Active Substance: DIPYRIDAMOLE
     Indication: Systemic lupus erythematosus
  13. TACROLIMUS [Concomitant]
     Active Substance: TACROLIMUS
     Indication: Systemic lupus erythematosus
  14. ZOPICLONE [Concomitant]
     Active Substance: ZOPICLONE
  15. NOVORAPID [Concomitant]
     Active Substance: INSULIN ASPART

REACTIONS (2)
  - Hypoglycaemic encephalopathy [Fatal]
  - Completed suicide [Fatal]

NARRATIVE: CASE EVENT DATE: 20190810
